FAERS Safety Report 4782961-4 (Version None)
Quarter: 2005Q3

REPORT INFORMATION
  Report Type: 
  Country: None (occurrence: None)
  Receive Date: 20050929
  Receipt Date: 20050802
  Transmission Date: 20060218
  Serious: Yes (Other)
  Sender: FDA-Public Use
  Company Number: GBWYE880403AUG05

PATIENT
  Sex: Male

DRUGS (2)
  1. ENBREL [Suspect]
     Indication: SPONDYLOARTHROPATHY
     Dosage: UNKNOWN
     Route: 058
     Dates: start: 20040301, end: 20050801
  2. ARCOXIA [Concomitant]

REACTIONS (2)
  - DEMYELINATION [None]
  - MYELITIS [None]
